FAERS Safety Report 16092765 (Version 1)
Quarter: 2019Q1

REPORT INFORMATION
  Report Type: Spontaneous
  Country: NL (occurrence: NL)
  Receive Date: 20190320
  Receipt Date: 20190320
  Transmission Date: 20190418
  Serious: Yes (Hospitalization)
  Sender: FDA-Public Use
  Company Number: NL-ABBVIE-19S-114-2705706-00

PATIENT
  Sex: Male

DRUGS (3)
  1. DUODOPA [Suspect]
     Active Substance: CARBIDOPA\LEVODOPA
     Indication: PARKINSON^S DISEASE
     Route: 050
  2. NEUPRO [Suspect]
     Active Substance: ROTIGOTINE
     Indication: PRODUCT USED FOR UNKNOWN INDICATION
     Route: 065
  3. ROTIGOTINE [Suspect]
     Active Substance: ROTIGOTINE
     Indication: PRODUCT USED FOR UNKNOWN INDICATION
     Route: 065

REACTIONS (16)
  - Stoma site inflammation [Unknown]
  - Freezing phenomenon [Unknown]
  - Malaise [Unknown]
  - Product administration error [Unknown]
  - Stoma site induration [Unknown]
  - Mood swings [Unknown]
  - Dyskinesia [Unknown]
  - Muscle spasms [Unknown]
  - Stoma site infection [Unknown]
  - Medical device site haematoma [Unknown]
  - Pyrexia [Unknown]
  - Anxiety [Unknown]
  - Abdominal abscess [Unknown]
  - Abdominal pain [Unknown]
  - Stoma site discharge [Unknown]
  - Stoma site erythema [Unknown]

NARRATIVE: CASE EVENT DATE: 2019
